FAERS Safety Report 11059449 (Version 1)
Quarter: 2015Q2

REPORT INFORMATION
  Report Type: Spontaneous
  Country: None (occurrence: None)
  Receive Date: 20150422
  Receipt Date: 20150422
  Transmission Date: 20150821
  Serious: Yes (Hospitalization)
  Sender: FDA-Public Use
  Company Number: None

PATIENT
  Age: 50 Year
  Sex: Female
  Weight: 63.4 kg

DRUGS (3)
  1. BUPIVACAINE [Suspect]
     Active Substance: BUPIVACAINE
  2. LIDOCAINE. [Suspect]
     Active Substance: LIDOCAINE
     Dates: start: 20150420, end: 20150420
  3. KENALOG [Suspect]
     Active Substance: TRIAMCINOLONE ACETONIDE
     Dates: start: 20150420, end: 20150420

REACTIONS (5)
  - Hearing impaired [None]
  - Urticaria [None]
  - Asthenia [None]
  - Dyspnoea [None]
  - Syncope [None]

NARRATIVE: CASE EVENT DATE: 20150420
